FAERS Safety Report 5151665-0 (Version None)
Quarter: 2006Q4

REPORT INFORMATION
  Report Type: 
  Country: None (occurrence: None)
  Receive Date: 20061115
  Receipt Date: 20061106
  Transmission Date: 20070319
  Serious: Yes (Other)
  Sender: FDA-Public Use
  Company Number: NL-ROCHE-470279

PATIENT

DRUGS (2)
  1. XELODA [Suspect]
     Indication: COLORECTAL CANCER
     Route: 048
  2. AVASTIN [Suspect]
     Indication: COLORECTAL CANCER
     Route: 042

REACTIONS (1)
  - TRANSIENT ISCHAEMIC ATTACK [None]
